FAERS Safety Report 8267659-2 (Version None)
Quarter: 2012Q2

REPORT INFORMATION
  Report Type: 
  Country: None (occurrence: None)
  Receive Date: 20120409
  Receipt Date: 20120330
  Transmission Date: 20120825
  Serious: Yes (Other)
  Sender: FDA-Public Use
  Company Number: AU-PFIZER INC-2012068922

PATIENT

DRUGS (1)
  1. EFFEXOR XR [Suspect]
     Dosage: 600 MG

REACTIONS (1)
  - ELECTROCARDIOGRAM QT PROLONGED [None]
